FAERS Safety Report 7647983-4 (Version None)
Quarter: 2011Q3

REPORT INFORMATION
  Report Type: 
  Country: None (occurrence: None)
  Receive Date: 20110801
  Receipt Date: 20110712
  Transmission Date: 20111222
  Serious: No
  Sender: FDA-Public Use
  Company Number: US-ABBOTT-11P-163-0804418-00

PATIENT
  Sex: Male

DRUGS (3)
  1. CREON [Suspect]
     Indication: DYSPEPSIA
  2. CREON [Suspect]
     Indication: GASTROINTESTINAL HYPERMOTILITY
  3. CREON [Suspect]
     Indication: ENZYME ABNORMALITY
     Dosage: DAILY DOSE: 6 DOSAGE FORM, AS USED: 24000 UNIT
     Route: 065
     Dates: start: 20110401

REACTIONS (1)
  - PAIN IN EXTREMITY [None]
